FAERS Safety Report 4434669-2 (Version None)
Quarter: 2004Q3

REPORT INFORMATION
  Report Type: 
  Country: None (occurrence: None)
  Receive Date: 20040827
  Receipt Date: 20040816
  Transmission Date: 20050211
  Serious: Yes (Other)
  Sender: FDA-Public Use
  Company Number: US-JNJFOC-20040301396

PATIENT
  Sex: Female
  Weight: 94.5 kg

DRUGS (20)
  1. REMICADE [Suspect]
     Route: 042
  2. REMICADE [Suspect]
     Route: 042
  3. REMICADE [Suspect]
     Route: 042
  4. REMICADE [Suspect]
     Route: 042
  5. REMICADE [Suspect]
     Indication: RHEUMATOID ARTHRITIS
     Route: 042
  6. METHOTREXATE [Concomitant]
     Route: 058
  7. BEXTRA [Concomitant]
  8. EVOXAC [Concomitant]
  9. MAXZIDE [Concomitant]
  10. MAXZIDE [Concomitant]
  11. PROZAC [Concomitant]
  12. DETROL [Concomitant]
  13. LEUCOVORIN [Concomitant]
  14. NEXIUM [Concomitant]
  15. ACTIVELLE [Concomitant]
  16. ACTIVELLE [Concomitant]
  17. FOLIC ACID [Concomitant]
  18. SOLU-MEDROL [Concomitant]
     Route: 042
  19. SOLU-MEDROL [Concomitant]
     Route: 042
  20. VIOXX [Concomitant]

REACTIONS (8)
  - BLOOD PRESSURE DECREASED [None]
  - BLOOD PRESSURE INCREASED [None]
  - DIZZINESS [None]
  - HEART RATE IRREGULAR [None]
  - KNEE ARTHROPLASTY [None]
  - NAUSEA [None]
  - PARAESTHESIA [None]
  - SHOULDER ARTHROPLASTY [None]
